FAERS Safety Report 13851624 (Version 2)
Quarter: 2017Q4

REPORT INFORMATION
  Report Type: Spontaneous
  Country: US (occurrence: US)
  Receive Date: 20170810
  Receipt Date: 20171215
  Transmission Date: 20180320
  Serious: No
  Sender: FDA-Public Use
  Company Number: GXBR2017US001506

PATIENT
  Sex: Female
  Weight: 63.49 kg

DRUGS (1)
  1. BUDESONIDE SANDOZ [Suspect]
     Active Substance: BUDESONIDE
     Indication: ASTHMA
     Dosage: UNK UNK, BID (EVERY 12 HOURS)
     Route: 055
     Dates: start: 20170422

REACTIONS (1)
  - Peak expiratory flow rate decreased [Not Recovered/Not Resolved]
